FAERS Safety Report 7313694-8 (Version None)
Quarter: 2011Q1

REPORT INFORMATION
  Report Type: 
  Country: None (occurrence: None)
  Receive Date: 20110225
  Receipt Date: 20110214
  Transmission Date: 20110831
  Serious: Yes (Hospitalization, Other)
  Sender: FDA-Public Use
  Company Number: CN-ELI_LILLY_AND_COMPANY-CN201101005968

PATIENT
  Age: 68 Year
  Sex: Male

DRUGS (2)
  1. ZYPREXA [Suspect]
     Dosage: 5 MG, DAILY (1/D)
     Route: 048
     Dates: start: 20090101, end: 20100601
  2. ZYPREXA [Suspect]
     Indication: SCHIZOPHRENIA
     Dates: end: 20090101

REACTIONS (6)
  - HYPERTENSION [None]
  - LABORATORY TEST ABNORMAL [None]
  - INTENTIONAL DRUG MISUSE [None]
  - RED BLOOD CELLS URINE POSITIVE [None]
  - ADVERSE EVENT [None]
  - RHABDOMYOLYSIS [None]
